FAERS Safety Report 25998011 (Version 3)
Quarter: 2025Q4

REPORT INFORMATION
  Report Type: Spontaneous
  Country: US (occurrence: US)
  Receive Date: 20251105
  Receipt Date: 20251217
  Transmission Date: 20260117
  Serious: No
  Sender: TOLMAR
  Company Number: US-Tolmar-TLM-2025-08000

PATIENT

DRUGS (4)
  1. ELIGARD [Suspect]
     Active Substance: LEUPROLIDE ACETATE
     Indication: Prostate cancer
     Dosage: EXP. DATES. -DEC-2026; DEC-2026; DEC-2026?SN 5135744892274?GTIN 00362935461500?DOSE NOT ADMINISTERED
  2. ELIGARD [Suspect]
     Active Substance: LEUPROLIDE ACETATE
     Dosage: REPLACEMENT DOSE GIVEN
  3. DEVICE [Suspect]
     Active Substance: DEVICE
     Indication: Prostate cancer
     Dosage: EXP. DATES. -DEC-2026; DEC-2026; DEC-2026?SN 5135744892274?GTIN 00362935461500
  4. DEVICE [Suspect]
     Active Substance: DEVICE
     Dosage: EXP. DATES. -DEC-2026; DEC-2026; DEC-2026?SN 5135744892274?GTIN 00362935461500

REACTIONS (2)
  - Intercepted product administration error [Unknown]
  - Product packaging quantity issue [Unknown]
